FAERS Safety Report 10375989 (Version 3)
Quarter: 2014Q4

REPORT INFORMATION
  Report Type: Spontaneous
  Country: US (occurrence: US)
  Receive Date: 20140811
  Receipt Date: 20141121
  Transmission Date: 20150528
  Serious: Yes (Death, Hospitalization, Other)
  Sender: FDA-Public Use
  Company Number: US-B.I. PHARMACEUTICALS,INC./RIDGEFIELD-2014-BI-35880BP

PATIENT
  Age: 60 Year
  Sex: Male

DRUGS (4)
  1. LORTAB [Concomitant]
     Active Substance: ACETAMINOPHEN\HYDROCODONE BITARTRATE
     Indication: PAIN
     Route: 065
  2. DIPHENHYDRAMINE PM [Concomitant]
     Indication: PRODUCT USED FOR UNKNOWN INDICATION
     Route: 065
  3. PRADAXA [Suspect]
     Active Substance: DABIGATRAN ETEXILATE MESYLATE
     Indication: PRODUCT USED FOR UNKNOWN INDICATION
     Route: 065
     Dates: end: 20130817
  4. ACETOMINOPEN [Concomitant]
     Indication: PAIN
     Route: 065

REACTIONS (8)
  - Acute kidney injury [Unknown]
  - Rectal haemorrhage [Unknown]
  - Pulseless electrical activity [Unknown]
  - Coagulopathy [Unknown]
  - Acute respiratory failure [Fatal]
  - Anaemia [Unknown]
  - Multi-organ failure [Unknown]
  - Overdose [Unknown]

NARRATIVE: CASE EVENT DATE: 20130817
